FAERS Safety Report 13345938 (Version 2)
Quarter: 2017Q3

REPORT INFORMATION
  Report Type: Spontaneous
  Country: US (occurrence: US)
  Receive Date: 20170317
  Receipt Date: 20170727
  Transmission Date: 20171127
  Serious: Yes (Hospitalization, Other)
  Sender: FDA-Public Use
  Company Number: US-B.I. PHARMACEUTICALS,INC./RIDGEFIELD-2017-BI-014252

PATIENT
  Age: 80 Year
  Sex: Female

DRUGS (14)
  1. B12 SUBLINGUAL [Concomitant]
     Indication: SUPPLEMENTATION THERAPY
     Route: 060
  2. CITALOPRAM HYDROBROMIDE. [Concomitant]
     Active Substance: CITALOPRAM HYDROBROMIDE
     Indication: ANXIETY
     Dosage: ONE CAPLET DAILY;  FORM STRENGTH: 20 MG; FORMULATION: CAPLET
     Route: 048
  3. SPIRIVA [Suspect]
     Active Substance: TIOTROPIUM BROMIDE MONOHYDRATE
     Indication: CHRONIC OBSTRUCTIVE PULMONARY DISEASE
     Dosage: 2 INHALATIONS ONCE A DAY;  FORM STRENGTH: 2.5 MCG; FORMULATION: INHALATION SPRAY ADMINISTRATION CORR
     Route: 055
     Dates: start: 201501
  4. METOPROLOL. [Concomitant]
     Active Substance: METOPROLOL
     Indication: HEART RATE
     Dosage: HALF A TABLET BID;  FORM STRENGTH: 25MG DAILY; FORMULATION: CAPLET
     Route: 048
  5. ALPRAZOLAM. [Concomitant]
     Active Substance: ALPRAZOLAM
     Indication: ANXIETY
     Dosage: ONE CAPLET DAILY AND PRN;  FORM STRENGTH: 5MG; FORMULATION: CAPLET
     Route: 048
  6. BABY ASPIRIN [Concomitant]
     Active Substance: ASPIRIN
     Indication: PRODUCT USED FOR UNKNOWN INDICATION
     Dosage: ONE CAPLET DAILY;  FORM STRENGTH: 81MG; FORMULATION: CAPLET
     Route: 048
  7. ENALAPRIL MALEATE- [Concomitant]
     Indication: PRODUCT USED FOR UNKNOWN INDICATION
     Dosage: ONE CAPLET DAILY;  FORM STRENGTH: 5MG; FORMULATION: CAPLET
     Route: 048
  8. SPIRIVA [Suspect]
     Active Substance: TIOTROPIUM BROMIDE MONOHYDRATE
     Indication: EMPHYSEMA
  9. DONEPEZIL HCL [Concomitant]
     Active Substance: DONEPEZIL HYDROCHLORIDE
     Indication: PRODUCT USED FOR UNKNOWN INDICATION
     Dosage: ONE CAPLET DAILY;  FORM STRENGTH: 10MG; FORMULATION: CAPLET
     Route: 048
  10. PRESERVISION AREDS 2 [Concomitant]
     Indication: DRY EYE
     Route: 065
  11. LEVOTHYROXINE. [Concomitant]
     Active Substance: LEVOTHYROXINE
     Indication: HYPOTHYROIDISM
     Dosage: ONE TABLET DAILY;  FORM STRENGTH: .125MCG; FORMULATION: TABLET
     Route: 048
     Dates: start: 1985
  12. ZOLPIDEM TARTRATE. [Concomitant]
     Active Substance: ZOLPIDEM TARTRATE
     Indication: PRODUCT USED FOR UNKNOWN INDICATION
     Dosage: ONE CAPLET DAILY;  FORM STRENGTH: 2.5 MG; FORMULATION: CAPLET
     Route: 048
  13. DIGOXIN. [Concomitant]
     Active Substance: DIGOXIN
     Indication: DRUG THERAPY
     Dosage: ONE TABLET DAILY;  FORM STRENGTH: .125MCG DAILY; FORMULATION: TABLET
     Route: 048
  14. IBUPROFEN. [Concomitant]
     Active Substance: IBUPROFEN
     Indication: DRY EYE
     Dosage: DAILY DOSE: ONE CAPLET AS NEEDED;  FORM STRENGTH: 800MG; FORMULATION: CAPLET
     Route: 048

REACTIONS (3)
  - Sepsis [Unknown]
  - Myocardial infarction [Unknown]
  - Dementia [Unknown]

NARRATIVE: CASE EVENT DATE: 201512
